FAERS Safety Report 25602905 (Version 1)
Quarter: 2025Q3

REPORT INFORMATION
  Report Type: Report from Study
  Country: US (occurrence: US)
  Receive Date: 20250724
  Receipt Date: 20250724
  Transmission Date: 20251020
  Serious: Yes (Other)
  Sender: ALEXION PHARMACEUTICALS
  Company Number: US-AstraZeneca-CH-00912769A

PATIENT
  Age: 38 Year
  Sex: Female

DRUGS (1)
  1. ULTOMIRIS [Suspect]
     Active Substance: RAVULIZUMAB-CWVZ
     Indication: Neuromyelitis optica spectrum disorder
     Route: 065

REACTIONS (11)
  - Blindness [Unknown]
  - Musculoskeletal stiffness [Unknown]
  - Confusional state [Unknown]
  - Malaise [Unknown]
  - Photophobia [Unknown]
  - Pain [Unknown]
  - Headache [Unknown]
  - Influenza like illness [Unknown]
  - Rash [Unknown]
  - Myalgia [Unknown]
  - Pyrexia [Unknown]

NARRATIVE: CASE EVENT DATE: 20250703
